FAERS Safety Report 20245126 (Version 1)
Quarter: 2021Q4

REPORT INFORMATION
  Report Type: Spontaneous
  Country: US (occurrence: US)
  Receive Date: 20211229
  Receipt Date: 20211229
  Transmission Date: 20220303
  Serious: Yes (Other)
  Sender: FDA-Public Use
  Company Number: US-STRIDES ARCOLAB LIMITED-2021SP025745

PATIENT
  Age: 16 Year
  Sex: Male

DRUGS (2)
  1. ACETAZOLAMIDE [Suspect]
     Active Substance: ACETAZOLAMIDE
     Indication: Idiopathic intracranial hypertension
     Dosage: 2 GRAM PER DAY
     Route: 065
  2. ACETAZOLAMIDE [Suspect]
     Active Substance: ACETAZOLAMIDE
     Indication: Venous stenosis
     Dosage: UNK, TAPERED OFF
     Route: 065

REACTIONS (1)
  - Drug ineffective for unapproved indication [Unknown]
